APPROVED DRUG PRODUCT: ALPRAZOLAM
Active Ingredient: ALPRAZOLAM
Strength: 1MG
Dosage Form/Route: TABLET, EXTENDED RELEASE;ORAL
Application: A077198 | Product #002
Applicant: ACTAVIS LABORATORIES FL INC
Approved: May 13, 2010 | RLD: No | RS: No | Type: DISCN